FAERS Safety Report 6579498-9 (Version None)
Quarter: 2010Q1

REPORT INFORMATION
  Report Type: 
  Country: None (occurrence: None)
  Receive Date: 20100209
  Receipt Date: 20100209
  Transmission Date: 20100710
  Serious: Yes (Hospitalization, Other)
  Sender: FDA-Public Use
  Company Number: None

PATIENT
  Age: 44 Year
  Sex: Female
  Weight: 65.7716 kg

DRUGS (1)
  1. PAXIL [Suspect]
     Indication: ANXIETY
     Dosage: 25MG ONE TIME A DAY STILL ON PAXIL
     Dates: start: 20070101, end: 20100208

REACTIONS (4)
  - FALL [None]
  - MOTOR DYSFUNCTION [None]
  - PAIN [None]
  - TREATMENT NONCOMPLIANCE [None]
